FAERS Safety Report 8726911 (Version 2)
Quarter: 2015Q2

REPORT INFORMATION
  Report Type: Report from Study
  Country: US (occurrence: US)
  Receive Date: 20120816
  Receipt Date: 20150625
  Transmission Date: 20150821
  Serious: Yes (Hospitalization, Other)
  Sender: FDA-Public Use
  Company Number: US-ROCHE-1100648

PATIENT
  Age: 52 Year
  Sex: Male

DRUGS (7)
  1. ACTIVASE [Suspect]
     Active Substance: ALTEPLASE
     Indication: ACUTE MYOCARDIAL INFARCTION
     Route: 042
  2. LIDOCAINE. [Concomitant]
     Active Substance: LIDOCAINE
     Route: 042
  3. LIDOCAINE. [Concomitant]
     Active Substance: LIDOCAINE
     Dosage: FOR 36 HRS
     Route: 042
  4. HEPARIN [Concomitant]
     Active Substance: HEPARIN SODIUM
     Dosage: 1000 UNITS PER HOUR FOR 72 HRS
     Route: 042
  5. NITROGLYCERINE [Concomitant]
     Active Substance: NITROGLYCERIN
     Route: 042
  6. LIDOCAINE. [Concomitant]
     Active Substance: LIDOCAINE
     Route: 042
  7. HEPARIN [Concomitant]
     Active Substance: HEPARIN SODIUM
     Dosage: 5000 UNITS
     Route: 058

REACTIONS (7)
  - Bradycardia [Unknown]
  - Vomiting [Unknown]
  - Fatigue [Unknown]
  - Supraventricular tachycardia [Unknown]
  - Blood creatine phosphokinase increased [Unknown]
  - Ventricular fibrillation [Unknown]
  - Ventricular extrasystoles [Unknown]

NARRATIVE: CASE EVENT DATE: 19880819
